FAERS Safety Report 17966604 (Version 10)
Quarter: 2021Q3

REPORT INFORMATION
  Report Type: Spontaneous
  Country: CA (occurrence: CA)
  Receive Date: 20200701
  Receipt Date: 20210906
  Transmission Date: 20211014
  Serious: Yes (Other)
  Sender: FDA-Public Use
  Company Number: CA-CELLTRION INC.-2019CA025253

PATIENT

DRUGS (15)
  1. INFLECTRA [Suspect]
     Active Substance: INFLIXIMAB-DYYB
     Dosage: 10 MG/KG, 900 MG, EVERY 6 WEEKS
     Route: 042
     Dates: start: 20191105
  2. INFLECTRA [Suspect]
     Active Substance: INFLIXIMAB-DYYB
     Dosage: 10 MG/KG (900 MG EVERY 8 WEEKS)
     Route: 042
     Dates: start: 20210114
  3. INFLECTRA [Suspect]
     Active Substance: INFLIXIMAB-DYYB
     Dosage: 10 MG/KG (900 MG EVERY 6 WEEKS)
     Route: 042
     Dates: start: 20200602
  4. INFLECTRA [Suspect]
     Active Substance: INFLIXIMAB-DYYB
     Indication: COLITIS ULCERATIVE
     Dosage: 10 MG/KG, 900 MG, EVERY 6 WEEKS
     Route: 042
     Dates: start: 20190923
  5. INFLECTRA [Suspect]
     Active Substance: INFLIXIMAB-DYYB
     Dosage: 10 MG/KG, 900 MG, EVERY 6 WEEKS
     Route: 042
     Dates: start: 20191218
  6. INFLECTRA [Suspect]
     Active Substance: INFLIXIMAB-DYYB
     Dosage: 10 MG/KG (900 MG EVERY 8 WEEKS)
     Route: 042
     Dates: start: 20210825
  7. INFLECTRA [Suspect]
     Active Substance: INFLIXIMAB-DYYB
     Dosage: 10 MG/KG (900 MG EVERY 8 WEEKS)
     Route: 042
     Dates: start: 20210310
  8. INFLECTRA [Suspect]
     Active Substance: INFLIXIMAB-DYYB
     Dosage: 10 MG/KG (900 MG EVERY 8 WEEKS)
     Route: 042
     Dates: start: 20210507
  9. INFLECTRA [Suspect]
     Active Substance: INFLIXIMAB-DYYB
     Dosage: 10 MG/KG (900 MG EVERY 8 WEEKS)
     Route: 042
     Dates: start: 20210825
  10. PREDNISONE. [Concomitant]
     Active Substance: PREDNISONE
     Dosage: 50 MG
     Route: 048
  11. INFLECTRA [Suspect]
     Active Substance: INFLIXIMAB-DYYB
     Dosage: 10 MG/KG (900 MG EVERY 6 WEEKS)/UNKNOWN (INFLECTRA SWITCH IN UK)
     Route: 042
     Dates: start: 20200717, end: 20200717
  12. INFLECTRA [Suspect]
     Active Substance: INFLIXIMAB-DYYB
     Dosage: 10 MG/KG (900 MG EVERY 8 WEEKS)
     Route: 042
     Dates: start: 20200917
  13. INFLECTRA [Suspect]
     Active Substance: INFLIXIMAB-DYYB
     Dosage: 10 MG/KG (900 MG EVERY 8 WEEKS)
     Route: 042
     Dates: start: 20201117
  14. INFLECTRA [Suspect]
     Active Substance: INFLIXIMAB-DYYB
     Dosage: 10 MG/KG (900 MG EVERY 8 WEEKS)
     Route: 042
     Dates: start: 20210629
  15. PREDNISONE. [Concomitant]
     Active Substance: PREDNISONE
     Dosage: 50 MG

REACTIONS (9)
  - Drug level above therapeutic [Unknown]
  - Intentional product use issue [Unknown]
  - Lipase increased [Unknown]
  - Heart rate decreased [Unknown]
  - Dermatitis psoriasiform [Unknown]
  - Seasonal allergy [Unknown]
  - Off label use [Unknown]
  - Off label use [Unknown]
  - Condition aggravated [Not Recovered/Not Resolved]

NARRATIVE: CASE EVENT DATE: 20190923
